FAERS Safety Report 16126813 (Version 1)
Quarter: 2019Q1

REPORT INFORMATION
  Report Type: Spontaneous
  Country: GB (occurrence: GB)
  Receive Date: 20190328
  Receipt Date: 20190328
  Transmission Date: 20190418
  Serious: Yes (Life-Threatening, Other)
  Sender: FDA-Public Use
  Company Number: GB-ACCORD-112169

PATIENT
  Age: 31 Year
  Sex: Female
  Weight: 58.29 kg

DRUGS (16)
  1. PREDNISOLONE. [Concomitant]
     Active Substance: PREDNISOLONE
     Dosage: IN MORNING(BREAKFAST),ALSO 30MG FROM 08-MAY-2018 TO 11-MAY-2018 FOR 3 DAY (CUMULATIVE DOSE: 2520 MG)
     Dates: start: 20180724
  2. RANITIDINE. [Concomitant]
     Active Substance: RANITIDINE
     Indication: DYSPEPSIA
     Dosage: TWICE A DAY
     Dates: start: 20180529
  3. FOLIC ACID. [Concomitant]
     Active Substance: FOLIC ACID
     Indication: SYSTEMIC LUPUS ERYTHEMATOSUS
     Dates: start: 20180625
  4. FLUCONAZOLE. [Concomitant]
     Active Substance: FLUCONAZOLE
     Indication: FUNGAL INFECTION
     Dates: start: 20180529
  5. RITUXIMAB. [Concomitant]
     Active Substance: RITUXIMAB
     Indication: LUPUS NEPHRITIS
     Dates: start: 2018
  6. EVACAL D3 [Concomitant]
     Indication: BONE DISORDER
     Dosage: 1500MG/400UNITS. THIS IS THE SAME AS ADCAL-D3
     Dates: start: 20180713
  7. COTRIMOXAZOLE [Concomitant]
     Active Substance: SULFAMETHOXAZOLE\TRIMETHOPRIM
     Dosage: 80MG/400MG?DOSE: 480 MG?CUMULATIVE DOSE: 29760 MG
     Dates: start: 20180530
  8. REVAXIS [Concomitant]
     Active Substance: DIPHTHERIA AND TETANUS TOXOIDS AND POLIOVIRUS VACCINE ANTIGENS
     Dosage: IMMEDIATELY.
     Dates: start: 20180526, end: 20180526
  9. PNEUMOCOCCAL POLYSACCHARIDE VA [Concomitant]
     Dosage: IMMEDIATELY.
     Dates: start: 20180526, end: 20180526
  10. PREDNISOLONE. [Concomitant]
     Active Substance: PREDNISOLONE
     Dosage: IN THE MORNING AT BREAKFAST.
     Dates: start: 20180508, end: 20180511
  11. ADCAL-D3 [Concomitant]
     Active Substance: CALCIUM CARBONATE\CHOLECALCIFEROL
     Indication: BONE DISORDER
     Dates: start: 20180529, end: 20180705
  12. EVACAL D3 [Concomitant]
     Indication: BONE DISORDER
     Dosage: 1500MG/400UNITS. THIS IS THE SAME AS ADCAL-D3
     Dates: start: 20180713
  13. PREDNISOLONE. [Concomitant]
     Active Substance: PREDNISOLONE
     Dosage: IN THE MORNING, AFTER BREAKFAST.
     Dates: start: 20180529, end: 20180720
  14. AMLODIPINE [Concomitant]
     Active Substance: AMLODIPINE BESYLATE
     Indication: HYPERTENSION
     Dates: start: 20180530
  15. HYDROXYCHLOROQUINE [Concomitant]
     Active Substance: HYDROXYCHLOROQUINE
     Dosage: IN THE MORNING.
     Dates: start: 20180613, end: 2018
  16. MYCOPHENOLIC ACID. [Suspect]
     Active Substance: MYCOPHENOLIC ACID
     Indication: SYSTEMIC LUPUS ERYTHEMATOSUS
     Route: 048
     Dates: start: 2007, end: 2018

REACTIONS (3)
  - Abdominal discomfort [Unknown]
  - Neutropenia [Recovered/Resolved]
  - Off label use [Unknown]

NARRATIVE: CASE EVENT DATE: 20180731
